FAERS Safety Report 4874837-9 (Version None)
Quarter: 2006Q1

REPORT INFORMATION
  Report Type: 
  Country: None (occurrence: None)
  Receive Date: 20060104
  Receipt Date: 20051221
  Transmission Date: 20060701
  Serious: Yes (Hospitalization)
  Sender: FDA-Public Use
  Company Number: 2002070312

PATIENT
  Age: 35 Month
  Sex: Male

DRUGS (2)
  1. ZYRTEC [Suspect]
     Indication: LARYNGITIS ALLERGIC
     Dosage: 5 MG (2.5 MG, 2 IN 1 D), ORAL
     Route: 048
     Dates: start: 20020222, end: 20021119
  2. BUDESONIDE [Concomitant]

REACTIONS (1)
  - ACCIDENTAL OVERDOSE [None]
